FAERS Safety Report 16293665 (Version 1)
Quarter: 2019Q2

REPORT INFORMATION
  Report Type: Spontaneous
  Country: DE (occurrence: DE)
  Receive Date: 20190509
  Receipt Date: 20190509
  Transmission Date: 20190711
  Serious: Yes (Other)
  Sender: FDA-Public Use
  Company Number: DE-WHANIN PHARM. CO., LTD.-2019M1044249

PATIENT
  Age: 33 Year
  Sex: Female
  Weight: 93 kg

DRUGS (3)
  1. NEMEXIN [Concomitant]
     Indication: BORDERLINE PERSONALITY DISORDER
     Dosage: UNK, QD
     Route: 048
     Dates: start: 20030121, end: 20030220
  2. GLIANIMON [Concomitant]
     Active Substance: BENPERIDOL
     Indication: PSYCHOTIC DISORDER
     Dosage: 4 MILLIGRAM, QD
     Route: 048
     Dates: start: 20030220
  3. LEPONEX [Suspect]
     Active Substance: CLOZAPINE
     Indication: PSYCHOTIC DISORDER
     Dosage: 650 MILLIGRAM, QD
     Route: 048
     Dates: start: 200203

REACTIONS (6)
  - Abnormal behaviour [Not Recovered/Not Resolved]
  - Catatonia [Not Recovered/Not Resolved]
  - Eye movement disorder [Not Recovered/Not Resolved]
  - Personality disorder [Not Recovered/Not Resolved]
  - Psychotic disorder [Not Recovered/Not Resolved]
  - Restlessness [Not Recovered/Not Resolved]

NARRATIVE: CASE EVENT DATE: 2002
